FAERS Safety Report 6584463-1 (Version None)
Quarter: 2010Q1

REPORT INFORMATION
  Report Type: 
  Country: None (occurrence: None)
  Receive Date: 20100216
  Receipt Date: 20100204
  Transmission Date: 20100710
  Serious: Yes (Other)
  Sender: FDA-Public Use
  Company Number: CN-BRISTOL-MYERS SQUIBB COMPANY-14759773

PATIENT
  Age: 53 Year
  Sex: Male

DRUGS (1)
  1. BARACLUDE [Suspect]
     Indication: HEPATITIS B
     Route: 048
     Dates: start: 20090825

REACTIONS (8)
  - ALANINE AMINOTRANSFERASE INCREASED [None]
  - CACHEXIA [None]
  - GINGIVAL BLEEDING [None]
  - HEADACHE [None]
  - JAUNDICE [None]
  - NAUSEA [None]
  - PLATELET COUNT DECREASED [None]
  - PYREXIA [None]
